FAERS Safety Report 22339237 (Version 1)
Quarter: 2023Q2

REPORT INFORMATION
  Report Type: Report from Study
  Country: US (occurrence: US)
  Receive Date: 20230518
  Receipt Date: 20230518
  Transmission Date: 20230721
  Serious: Yes (Other)
  Sender: FDA-Public Use
  Company Number: US-JAZZ PHARMACEUTICALS-2022-US-030775

PATIENT
  Sex: Male

DRUGS (19)
  1. XYWAV [Suspect]
     Active Substance: CALCIUM OXYBATE\MAGNESIUM OXYBATE\POTASSIUM OXYBATE\SODIUM OXYBATE
     Indication: Narcolepsy
     Dosage: 3 GRAM, BID
  2. XYWAV [Suspect]
     Active Substance: CALCIUM OXYBATE\MAGNESIUM OXYBATE\POTASSIUM OXYBATE\SODIUM OXYBATE
     Indication: Cataplexy
     Dosage: 3.75 GRAM, BID
  3. XYWAV [Suspect]
     Active Substance: CALCIUM OXYBATE\MAGNESIUM OXYBATE\POTASSIUM OXYBATE\SODIUM OXYBATE
     Indication: Somnolence
  4. CRESTOR [Concomitant]
     Active Substance: ROSUVASTATIN CALCIUM
     Dosage: UNK
     Dates: start: 20151104
  5. CIPRODEX [Concomitant]
     Active Substance: CIPROFLOXACIN HYDROCHLORIDE\DEXAMETHASONE
     Dosage: UNK
     Dates: start: 20151102
  6. FINASTERIDE [Concomitant]
     Active Substance: FINASTERIDE
     Dosage: UNK
     Dates: start: 20151102
  7. GABAPENTIN [Concomitant]
     Active Substance: GABAPENTIN
     Dosage: 0010 OTH
     Dates: start: 20151102
  8. MAGNESIUM OXIDE [Concomitant]
     Active Substance: MAGNESIUM OXIDE
     Dosage: UNK
     Dates: start: 20151102
  9. NIASPAN [Concomitant]
     Active Substance: NIACIN
     Dosage: UNK
     Dates: start: 20151102
  10. VALTREX [Concomitant]
     Active Substance: VALACYCLOVIR HYDROCHLORIDE
     Dosage: CAPLET
     Dates: start: 20151102
  11. VASCEPA [Concomitant]
     Active Substance: ICOSAPENT ETHYL
     Dosage: 0020 OTH
     Dates: start: 20151102
  12. VITAMIN D3 [Concomitant]
     Active Substance: CHOLECALCIFEROL
     Dosage: 5,000 UNIT
     Dates: start: 20151102
  13. FIASP [Concomitant]
     Active Substance: INSULIN ASPART
     Dosage: 100 UNIT/ML VIAL
     Dates: start: 20181105
  14. MEMANTINE [Concomitant]
     Active Substance: MEMANTINE
     Dosage: UNK
     Dates: start: 20201105
  15. HYDROCHLOROTHIAZIDE\TELMISARTAN [Concomitant]
     Active Substance: HYDROCHLOROTHIAZIDE\TELMISARTAN
     Dosage: UNK
     Dates: start: 20181105
  16. PROCARDIA [Concomitant]
     Active Substance: NIFEDIPINE
     Dosage: UNK
     Dates: start: 20181105
  17. ZOLPIDEM [Concomitant]
     Active Substance: ZOLPIDEM TARTRATE
     Dosage: UNK
  18. ZOLPIDEM [Concomitant]
     Active Substance: ZOLPIDEM TARTRATE
     Dosage: UNK
  19. FUROSEMIDE [Concomitant]
     Active Substance: FUROSEMIDE
     Dosage: UNK
     Dates: start: 20181105

REACTIONS (5)
  - Anaphylactic reaction [Unknown]
  - COVID-19 [Unknown]
  - Therapeutic response changed [Unknown]
  - Product administration interrupted [Unknown]
  - Intentional product use issue [Unknown]
